FAERS Safety Report 15314250 (Version 3)
Quarter: 2019Q1

REPORT INFORMATION
  Report Type: Spontaneous
  Country: US (occurrence: US)
  Receive Date: 20180824
  Receipt Date: 20190116
  Transmission Date: 20190417
  Serious: No
  Sender: FDA-Public Use
  Company Number: US-PFIZER INC-2018340372

PATIENT
  Age: 64 Year
  Sex: Female
  Weight: 92 kg

DRUGS (3)
  1. IBRANCE [Suspect]
     Active Substance: PALBOCICLIB
     Indication: BREAST CANCER FEMALE
     Dosage: 125 MG, CYCLIC (D1-D21,Q 28 D)
     Route: 048
     Dates: start: 201709
  2. IBRANCE [Suspect]
     Active Substance: PALBOCICLIB
     Dosage: 125 MG, CYCLIC (DAILY 3 WEEKS ON AND 1 WEEK OFF)
     Route: 048
     Dates: start: 20181112
  3. IBRANCE [Suspect]
     Active Substance: PALBOCICLIB
     Dosage: 125 MG, CYCLIC (DAILY 3 WEEKS ON AND 1 WEEK OFF)
     Route: 048
     Dates: start: 20181207

REACTIONS (10)
  - White blood cell count decreased [Unknown]
  - Pain in extremity [Recovering/Resolving]
  - Muscle spasms [Unknown]
  - Pain [Unknown]
  - Full blood count decreased [Unknown]
  - Stomatitis [Unknown]
  - Product administration error [Unknown]
  - Cheilitis [Unknown]
  - Constipation [Unknown]
  - Noninfective gingivitis [Unknown]

NARRATIVE: CASE EVENT DATE: 2018
